FAERS Safety Report 7626750-1 (Version None)
Quarter: 2011Q3

REPORT INFORMATION
  Report Type: 
  Country: None (occurrence: None)
  Receive Date: 20110721
  Receipt Date: 20110708
  Transmission Date: 20111222
  Serious: Yes (Other)
  Sender: FDA-Public Use
  Company Number: US-ELI_LILLY_AND_COMPANY-US201107003423

PATIENT
  Sex: Male

DRUGS (4)
  1. DEPAKOTE [Concomitant]
     Dosage: 500 MG, QD
  2. COGENTIN [Concomitant]
     Dosage: 2 MG, BID
  3. ATIVAN [Concomitant]
  4. ZYPREXA [Suspect]
     Indication: AGITATION
     Dosage: 10 MG, EACH EVENING
     Dates: start: 20080101

REACTIONS (3)
  - OFF LABEL USE [None]
  - SELF INJURIOUS BEHAVIOUR [None]
  - AGITATION [None]
